FAERS Safety Report 4524538-1 (Version None)
Quarter: 2005Q1

REPORT INFORMATION
  Report Type: 
  Country: None (occurrence: None)
  Receive Date: 20041117
  Receipt Date: 20040322
  Transmission Date: 20050727
  Serious: Yes (Hospitalization)
  Sender: FDA-Public Use
  Company Number: US-JNJFOC-20040300514

PATIENT
  Age: 55 Year
  Sex: Female
  Weight: 71.6683 kg

DRUGS (1)
  1. LEVAQUIN [Suspect]
     Indication: PNEUMONIA
     Dosage: 500 MG
     Dates: start: 20031223

REACTIONS (3)
  - GASTROINTESTINAL HAEMORRHAGE [None]
  - TENDON DISORDER [None]
  - TENDON RUPTURE [None]
